FAERS Safety Report 9783921 (Version 1)
Quarter: 2013Q4

REPORT INFORMATION
  Report Type: Spontaneous
  Country: US (occurrence: US)
  Receive Date: 20131226
  Receipt Date: 20131226
  Transmission Date: 20140711
  Serious: No
  Sender: FDA-Public Use
  Company Number: US-PFIZER INC-2013364916

PATIENT
  Age: 49 Year
  Sex: Female
  Weight: 97.51 kg

DRUGS (6)
  1. TIKOSYN [Suspect]
     Indication: ARRHYTHMIA
     Dosage: 250 UG, 2X/DAY
     Dates: start: 20131206
  2. CARDIZEM CD [Suspect]
     Indication: ARRHYTHMIA
     Dosage: 120 MG, 1X/DAY
  3. PLAVIX [Concomitant]
     Indication: CORONARY ARTERY DISEASE
     Dosage: 75 MG, 1X/DAY
  4. BABY ASPIRIN [Concomitant]
     Indication: CORONARY ARTERY DISEASE
     Dosage: UNK, 1X/DAY
  5. NITROSTAT [Concomitant]
     Indication: CORONARY ARTERY DISEASE
     Dosage: UNK, AS NEEDED
  6. XANAX [Concomitant]
     Indication: ANXIETY
     Dosage: 0.25 MG, AS NEEDED

REACTIONS (1)
  - Ventricular extrasystoles [Unknown]
